FAERS Safety Report 5495145-1 (Version None)
Quarter: 2007Q4

REPORT INFORMATION
  Report Type: 
  Country: None (occurrence: None)
  Receive Date: 20071024
  Receipt Date: 20071010
  Transmission Date: 20080405
  Serious: No
  Sender: FDA-Public Use
  Company Number: US-BOEHRINGER INGELHEIM PHARMACEUTICALS, INC.-2007-BP-22519BP

PATIENT
  Age: 71 Year
  Sex: Female

DRUGS (2)
  1. RANITIDINE (RANITIDINE HYDROCHLORIDE) 75 MG [Suspect]
     Indication: HELICOBACTER INFECTION
     Route: 048
     Dates: start: 20070901
  2. PEPTO-BISMOL [Concomitant]

REACTIONS (2)
  - ABDOMINAL PAIN [None]
  - DIARRHOEA [None]
